FAERS Safety Report 5007143-2 (Version None)
Quarter: 2006Q2

REPORT INFORMATION
  Report Type: 
  Country: None (occurrence: None)
  Receive Date: 20060519
  Receipt Date: 20060504
  Transmission Date: 20061013
  Serious: Yes (Hospitalization)
  Sender: FDA-Public Use
  Company Number: MY-MERCK-0605MYS00005

PATIENT
  Sex: Male
  Weight: 58 kg

DRUGS (8)
  1. VYTORIN [Suspect]
     Indication: HYPERLIPIDAEMIA
     Route: 048
     Dates: start: 20060101, end: 20060101
  2. METFORMIN [Concomitant]
     Route: 048
  3. PHYTONADIONE [Concomitant]
     Route: 065
  4. TELMISARTAN [Concomitant]
     Route: 048
     Dates: start: 20060501, end: 20060503
  5. ACETAMINOPHEN [Concomitant]
     Route: 048
  6. ETORICOXIB [Concomitant]
     Route: 065
  7. BETAINE GLUCURONATE AND DIETHANOLAMINE GLUCURONATE AND NIACINAMIDE ASC [Concomitant]
     Indication: HEPATIC FAILURE
     Route: 048
     Dates: start: 20060501
  8. BETAINE GLUCURONATE AND DIETHANOLAMINE GLUCURONATE AND NIACINAMIDE ASC [Concomitant]
     Indication: JAUNDICE
     Route: 048
     Dates: start: 20060501

REACTIONS (6)
  - ANOREXIA [None]
  - HEPATITIS ACUTE [None]
  - JAUNDICE CHOLESTATIC [None]
  - LETHARGY [None]
  - LIVER FUNCTION TEST ABNORMAL [None]
  - WEIGHT DECREASED [None]
